FAERS Safety Report 7753502-4 (Version None)
Quarter: 2011Q3

REPORT INFORMATION
  Report Type: 
  Country: None (occurrence: None)
  Receive Date: 20110915
  Receipt Date: 20110907
  Transmission Date: 20111222
  Serious: Yes (Hospitalization)
  Sender: FDA-Public Use
  Company Number: IT-PERRIGO-11IT007355

PATIENT
  Age: 75 Year
  Sex: Male

DRUGS (5)
  1. CIMETIDINE [Suspect]
     Indication: GASTROINTESTINAL ULCER HAEMORRHAGE
     Dosage: UNK
     Route: 065
  2. CITALOPRAM HYDROBROMIDE [Suspect]
     Indication: DEMENTIA ALZHEIMER'S TYPE
     Dosage: 20 MG, QD
     Route: 065
  3. DONEPEZIL HCL [Concomitant]
     Indication: DEMENTIA ALZHEIMER'S TYPE
     Dosage: 10 MG, QD
     Route: 065
  4. QUETIAPINE [Concomitant]
     Indication: DEMENTIA ALZHEIMER'S TYPE
     Dosage: 100 MG, BID
     Route: 065
  5. TICLOPIDINE HCL [Concomitant]
     Indication: PRODUCT USED FOR UNKNOWN INDICATION
     Dosage: 250 MG, BID
     Route: 065

REACTIONS (9)
  - SEROTONIN SYNDROME [None]
  - DRUG INTERACTION [None]
  - HYPERTENSION [None]
  - HYPERHIDROSIS [None]
  - BLOOD GLUCOSE INCREASED [None]
  - TREMOR [None]
  - RESTLESSNESS [None]
  - MYOCLONUS [None]
  - HYPERREFLEXIA [None]
